FAERS Safety Report 7086267 (Version 31)
Quarter: 2014Q1

REPORT INFORMATION
  Report Type: Report from Study
  Country: CA (occurrence: CA)
  Receive Date: 20090820
  Receipt Date: 20140205
  Transmission Date: 20141002
  Serious: Yes (Death, Hospitalization, Other)
  Sender: FDA-Public Use
  Company Number: PHHY2009CA21085

PATIENT
  Age: 74 Year
  Sex: Male

DRUGS (3)
  1. SANDOSTATIN LAR [Suspect]
     Indication: CARCINOID TUMOUR
     Dosage: 60 MG, EVERY 4 WEEKS
     Route: 030
     Dates: start: 20020702
  2. SANDOSTATIN LAR [Suspect]
     Dosage: 90 MG, EVERY 4 WEEKS
     Route: 030
     Dates: end: 20140103
  3. DIURETICS [Concomitant]
     Dosage: UNK UKN, UNK

REACTIONS (37)
  - Death [Fatal]
  - Asthenia [Unknown]
  - Oedema peripheral [Unknown]
  - Cardiac valve disease [Unknown]
  - Transient ischaemic attack [Unknown]
  - Cardiac failure [Unknown]
  - Heart valve incompetence [Unknown]
  - Blindness [Unknown]
  - Aphasia [Unknown]
  - Monoplegia [Unknown]
  - Posture abnormal [Not Recovered/Not Resolved]
  - Gout [Unknown]
  - Epistaxis [Unknown]
  - Heart rate decreased [Unknown]
  - Blood pressure systolic increased [Unknown]
  - Injection site bruising [Unknown]
  - Skin discolouration [Unknown]
  - Insomnia [Unknown]
  - Arthralgia [Unknown]
  - Bursitis [Unknown]
  - Serum serotonin increased [Unknown]
  - Discomfort [Unknown]
  - Erythema [Unknown]
  - Skin depigmentation [Unknown]
  - Dizziness [Unknown]
  - Musculoskeletal pain [Unknown]
  - Injection site pain [Unknown]
  - Arrhythmia [Unknown]
  - Heart rate irregular [Unknown]
  - Tachycardia [Unknown]
  - Dyspnoea exertional [Unknown]
  - Loss of consciousness [Recovered/Resolved]
  - Dyspnoea [Unknown]
  - Injection site mass [Unknown]
  - Rash pruritic [Unknown]
  - Pruritus [Unknown]
  - Injection site swelling [Unknown]
